FAERS Safety Report 20975876 (Version 2)
Quarter: 2022Q2

REPORT INFORMATION
  Report Type: Spontaneous
  Country: US (occurrence: US)
  Receive Date: 20220617
  Receipt Date: 20220621
  Transmission Date: 20220721
  Serious: Yes (Other)
  Sender: FDA-Public Use
  Company Number: US-PFIZER INC-202200829351

PATIENT
  Age: 31 Year
  Sex: Female

DRUGS (4)
  1. MITOXANTRONE HYDROCHLORIDE [Suspect]
     Active Substance: MITOXANTRONE HYDROCHLORIDE
     Indication: Breast cancer
     Dosage: 4 MG/M2, DAILY, 5 EVERY 21 DAYS
  2. DOXORUBICIN HYDROCHLORIDE [Suspect]
     Active Substance: DOXORUBICIN HYDROCHLORIDE
     Indication: Breast cancer
     Dosage: 500 MG/M2
  3. MITOMYCIN [Suspect]
     Active Substance: MITOMYCIN
     Indication: Breast cancer
     Dosage: UNK
  4. MITOLACTOL [Suspect]
     Active Substance: MITOLACTOL
     Indication: Breast cancer
     Dosage: UNK

REACTIONS (2)
  - Cardiac failure congestive [Unknown]
  - Cardiotoxicity [Unknown]
